FAERS Safety Report 6604420-6 (Version None)
Quarter: 2010Q1

REPORT INFORMATION
  Report Type: 
  Country: None (occurrence: None)
  Receive Date: 20100226
  Receipt Date: 20090929
  Transmission Date: 20100710
  Serious: No
  Sender: FDA-Public Use
  Company Number: A0809544A

PATIENT
  Age: 55 Year
  Sex: Male

DRUGS (20)
  1. LAMICTAL CD [Suspect]
     Indication: BIPOLAR DISORDER
     Dosage: 25MG PER DAY
     Route: 048
     Dates: start: 20090924
  2. PREDNISONE TAB [Concomitant]
  3. TRAZODONE HCL [Concomitant]
  4. LORAZEPAM [Concomitant]
  5. FOLIC ACID [Concomitant]
  6. CALCIUM CITRATE [Concomitant]
  7. MULTI-VITAMINS [Concomitant]
  8. LOVAZA [Concomitant]
  9. VITAMIN C [Concomitant]
  10. MS CONTIN [Concomitant]
  11. OXYCODONE HCL [Concomitant]
  12. PEPCID [Concomitant]
  13. ANDROGEL [Concomitant]
  14. PROVIGIL [Concomitant]
  15. ZEGERID [Concomitant]
  16. CELEXA [Concomitant]
  17. TIZANIDINE HCL [Concomitant]
  18. LAMICTAL CD [Concomitant]
  19. AZATHIOPRINE [Concomitant]
  20. ARAVA [Concomitant]

REACTIONS (2)
  - EYE DISCHARGE [None]
  - EYE PRURITUS [None]
